FAERS Safety Report 21009398 (Version 1)
Quarter: 2022Q2

REPORT INFORMATION
  Report Type: Spontaneous
  Country: US (occurrence: None)
  Receive Date: 20220624
  Receipt Date: 20220624
  Transmission Date: 20220720
  Serious: Yes (Other)
  Sender: FDA-Public Use
  Company Number: None

PATIENT
  Age: 65 Year
  Sex: Male
  Weight: 80.4 kg

DRUGS (1)
  1. LUMASON [Suspect]
     Active Substance: SULFUR HEXAFLUORIDE
     Dosage: OTHER FREQUENCY : AS NEEDED?
     Route: 042

REACTIONS (2)
  - Atrioventricular block [None]
  - Seizure [None]

NARRATIVE: CASE EVENT DATE: 20220624
